FAERS Safety Report 16136342 (Version 1)
Quarter: 2019Q1

REPORT INFORMATION
  Report Type: Spontaneous
  Country: JP (occurrence: JP)
  Receive Date: 20190329
  Receipt Date: 20190329
  Transmission Date: 20190418
  Serious: No
  Sender: FDA-Public Use
  Company Number: JP-ALLERGAN-1913835US

PATIENT
  Age: 4 Decade
  Sex: Male

DRUGS (3)
  1. ASENAPINE MALEATE - BP [Suspect]
     Active Substance: ASENAPINE MALEATE
     Indication: HALLUCINATION, AUDITORY
     Dosage: 2.5 MG, QD
     Route: 060
  2. ASPIRIN. [Concomitant]
     Active Substance: ASPIRIN
  3. BROMAZEPAM [Concomitant]
     Active Substance: BROMAZEPAM

REACTIONS (1)
  - Rash [Unknown]
